FAERS Safety Report 12759635 (Version 1)
Quarter: 2016Q3

REPORT INFORMATION
  Report Type: Report from Study
  Country: CA (occurrence: CA)
  Receive Date: 20160919
  Receipt Date: 20160919
  Transmission Date: 20161109
  Serious: Yes (Hospitalization, Other)
  Sender: FDA-Public Use
  Company Number: CA-JNJFOC-20160902682

PATIENT
  Age: 20 Year
  Sex: Female
  Weight: 57 kg

DRUGS (10)
  1. REMICADE [Suspect]
     Active Substance: INFLIXIMAB
     Indication: AUTOIMMUNE HEPATITIS
     Dosage: INDUCTION DOSE (0, 2, 6) THN EVERY 8 WEEKS
     Route: 042
     Dates: start: 20160819
  2. ZOPICLONE [Concomitant]
     Active Substance: ZOPICLONE
     Route: 065
  3. SYNCHRON [Concomitant]
     Route: 065
  4. URSODIOL. [Concomitant]
     Active Substance: URSODIOL
     Route: 065
  5. CELLCEPT [Concomitant]
     Active Substance: MYCOPHENOLATE MOFETIL\MYCOPHENOLATE MOFETIL HYDROCHLORIDE
     Dosage: 1000
     Route: 065
  6. ULTRAM [Concomitant]
     Active Substance: TRAMADOL HYDROCHLORIDE
     Route: 065
  7. DILAUDID [Concomitant]
     Active Substance: HYDROMORPHONE HYDROCHLORIDE
     Route: 065
  8. REMICADE [Suspect]
     Active Substance: INFLIXIMAB
     Indication: AUTOIMMUNE HEPATITIS
     Dosage: INDUCTION DOSE (0, 2, 6) THN EVERY 8 WEEKS
     Route: 042
     Dates: start: 20160912
  9. PREDNISONE. [Concomitant]
     Active Substance: PREDNISONE
     Dosage: 40
     Route: 065
  10. ALENDRONATE [Concomitant]
     Active Substance: ALENDRONATE SODIUM
     Dosage: 70
     Route: 065

REACTIONS (16)
  - Tachycardia [Recovering/Resolving]
  - Product use issue [Unknown]
  - Erythema [Recovering/Resolving]
  - Hypotension [Recovering/Resolving]
  - Nausea [Recovering/Resolving]
  - Feeling hot [Recovering/Resolving]
  - Infusion related reaction [Recovering/Resolving]
  - Fatigue [Unknown]
  - Hepatic enzyme increased [Recovering/Resolving]
  - Bradycardia [Recovering/Resolving]
  - Pyrexia [Recovering/Resolving]
  - Chills [Recovering/Resolving]
  - Laryngitis [Unknown]
  - Faeces pale [Unknown]
  - Fungal infection [Unknown]
  - Off label use [Unknown]

NARRATIVE: CASE EVENT DATE: 2016
